FAERS Safety Report 15110921 (Version 1)
Quarter: 2018Q3

REPORT INFORMATION
  Report Type: Spontaneous
  Country: US (occurrence: US)
  Receive Date: 20180705
  Receipt Date: 20180705
  Transmission Date: 20181010
  Serious: No
  Sender: FDA-Public Use
  Company Number: US-NATCO PHARMA-2018NAT00126

PATIENT
  Sex: Female

DRUGS (4)
  1. RIZATRIPTAN. [Suspect]
     Active Substance: RIZATRIPTAN
     Dosage: 10 MG, AS NEEDED
     Dates: start: 2015
  2. METFORMIN [Concomitant]
     Active Substance: METFORMIN HYDROCHLORIDE
     Dosage: 500 MG, 1X/DAY
     Route: 048
  3. RIZATRIPTAN. [Suspect]
     Active Substance: RIZATRIPTAN
     Indication: MIGRAINE
     Dosage: 10 MG, AS NEEDED
     Dates: start: 2018, end: 2018
  4. LEVOTHYROXINE. [Concomitant]
     Active Substance: LEVOTHYROXINE
     Dosage: 1 TABLETS, 1X/DAY
     Route: 048

REACTIONS (1)
  - Drug ineffective [Unknown]

NARRATIVE: CASE EVENT DATE: 2018
